FAERS Safety Report 23547679 (Version 1)
Quarter: 2024Q1

REPORT INFORMATION
  Report Type: Spontaneous
  Country: CN (occurrence: CN)
  Receive Date: 20240221
  Receipt Date: 20240221
  Transmission Date: 20240410
  Serious: Yes (Other)
  Sender: FDA-Public Use
  Company Number: CN-SUN PHARMACEUTICAL INDUSTRIES LTD-2024R1-431876

PATIENT
  Age: 70 Year
  Sex: Male

DRUGS (1)
  1. DOXYCYCLINE [Suspect]
     Active Substance: DOXYCYCLINE
     Indication: Scrub typhus
     Dosage: 100 MILLIGRAM, BID
     Route: 065

REACTIONS (3)
  - Condition aggravated [Unknown]
  - Loss of consciousness [Unknown]
  - Seizure [Recovering/Resolving]
